FAERS Safety Report 21747626 (Version 1)
Quarter: 2022Q4

REPORT INFORMATION
  Report Type: Spontaneous
  Country: US (occurrence: US)
  Receive Date: 20221219
  Receipt Date: 20221219
  Transmission Date: 20230113
  Serious: Yes (Hospitalization, Other)
  Sender: FDA-Public Use
  Company Number: US-MYLANLABS-2022M1139999

PATIENT
  Sex: Male

DRUGS (7)
  1. MERCAPTOPURINE [Suspect]
     Active Substance: MERCAPTOPURINE
     Indication: B precursor type acute leukaemia
     Dosage: UNK, CYCLE, RECEIVED FULL DOSING UNDER MAINTENANCE CYCLE
     Route: 065
  2. MERCAPTOPURINE [Suspect]
     Active Substance: MERCAPTOPURINE
     Dosage: UNK, CYCLE, RECEIVED IN THE MORNING UNDER MAINTENANCE CYCLE
     Route: 065
  3. MERCAPTOPURINE [Suspect]
     Active Substance: MERCAPTOPURINE
     Dosage: DOSE WAS INITIALLY INCREASED TO 125%
     Route: 065
  4. MERCAPTOPURINE [Suspect]
     Active Substance: MERCAPTOPURINE
     Dosage: LATER DECREASED TO 50%
     Route: 065
  5. METHOTREXATE [Suspect]
     Active Substance: METHOTREXATE
     Indication: B precursor type acute leukaemia
     Dosage: UNK, CYCLE, RECEIVED FULL DOSING UNDER MAINTENANCE CYCLE
     Route: 037
  6. METHOTREXATE [Suspect]
     Active Substance: METHOTREXATE
     Indication: B precursor type acute leukaemia
     Dosage: UNK
     Route: 065
  7. CYTARABINE [Concomitant]
     Active Substance: CYTARABINE
     Indication: B precursor type acute leukaemia
     Dosage: UNK, CYCLE, RECEIVED FULL DOSING UNDER MAINTENANCE CYCLE
     Route: 037

REACTIONS (9)
  - Mental status changes [Unknown]
  - Seizure [Unknown]
  - Purine metabolism disorder [Recovering/Resolving]
  - Alanine aminotransferase increased [Unknown]
  - Nausea [Recovered/Resolved]
  - Vomiting [Recovered/Resolved]
  - Irritability [Recovered/Resolved]
  - Sluggishness [Recovered/Resolved]
  - Rash [Recovered/Resolved]
